FAERS Safety Report 25901415 (Version 2)
Quarter: 2025Q4

REPORT INFORMATION
  Report Type: Spontaneous
  Country: CA (occurrence: CA)
  Receive Date: 20251009
  Receipt Date: 20251201
  Transmission Date: 20260117
  Serious: Yes (Other)
  Sender: PFIZER
  Company Number: CA-PFIZER INC-202500199902

PATIENT
  Age: 73 Year
  Sex: Male

DRUGS (1)
  1. ABRILADA [Suspect]
     Active Substance: ADALIMUMAB-AFZB
     Indication: Crohn^s disease
     Dosage: 160 MG ON WK 0, THEN 80 MG ON WK 2, THEN 40 MG WEEKLY FROM WK 4
     Route: 058
     Dates: start: 20250929

REACTIONS (2)
  - Cataract [Unknown]
  - Back pain [Recovering/Resolving]

NARRATIVE: CASE EVENT DATE: 20250101
